FAERS Safety Report 5714689-8 (Version None)
Quarter: 2008Q2

REPORT INFORMATION
  Report Type: 
  Country: None (occurrence: None)
  Receive Date: 20080423
  Receipt Date: 20080414
  Transmission Date: 20081010
  Serious: Yes (Hospitalization)
  Sender: FDA-Public Use
  Company Number: US-MERCK-0705USA04115

PATIENT
  Age: 82 Year
  Sex: Male

DRUGS (3)
  1. FOSAMAX [Suspect]
     Indication: OSTEOPOROSIS
     Route: 048
     Dates: start: 20030114, end: 20070201
  2. [THERAPY UNSPECIFIED] [Concomitant]
     Indication: HYPERTENSION
     Route: 065
     Dates: start: 20020101
  3. [THERAPY UNSPECIFIED] [Concomitant]
     Indication: BLOOD CHOLESTEROL INCREASED
     Route: 065
     Dates: start: 20020101

REACTIONS (6)
  - ABSCESS [None]
  - DENTAL CARIES [None]
  - JAW DISORDER [None]
  - PAIN IN JAW [None]
  - SWELLING [None]
  - TOOTH LOSS [None]
